FAERS Safety Report 4586827-4 (Version None)
Quarter: 2005Q1

REPORT INFORMATION
  Report Type: 
  Country: None (occurrence: None)
  Receive Date: 20050217
  Receipt Date: 20050217
  Transmission Date: 20050727
  Serious: Yes (Life-Threatening, Hospitalization)
  Sender: FDA-Public Use
  Company Number: None

PATIENT
  Age: 78 Year
  Sex: Female

DRUGS (4)
  1. BUPIVACAINE [Suspect]
     Indication: BACK PAIN
     Dosage: 3.75   ONCE    INTRADISCA
     Dates: start: 20040827, end: 20040827
  2. TRIAMCINOLONE [Concomitant]
  3. LIDOCAINE [Concomitant]
  4. OMNIPAQUE [Concomitant]

REACTIONS (1)
  - CARDIO-RESPIRATORY ARREST [None]
